FAERS Safety Report 24851015 (Version 6)
Quarter: 2025Q1

REPORT INFORMATION
  Report Type: Report from Study
  Country: BE (occurrence: BE)
  Receive Date: 20250116
  Receipt Date: 20250227
  Transmission Date: 20250409
  Serious: Yes (Hospitalization, Other)
  Sender: CSL BEHRING
  Company Number: BE-BEH-2025191399

PATIENT
  Age: 66 Year
  Sex: Male
  Weight: 80 kg

DRUGS (4)
  1. HIZENTRA [Suspect]
     Active Substance: HUMAN IMMUNOGLOBULIN G
     Indication: Secondary immunodeficiency
     Dosage: 32 G (160ML) QW(1X/WEEK)
     Route: 058
     Dates: start: 20241217
  2. HIZENTRA [Suspect]
     Active Substance: HUMAN IMMUNOGLOBULIN G
     Dosage: 32 G (160ML) QW(1X/WEEK)
     Route: 058
     Dates: start: 20250102
  3. HIZENTRA [Suspect]
     Active Substance: HUMAN IMMUNOGLOBULIN G
     Route: 058
  4. HIZENTRA [Suspect]
     Active Substance: HUMAN IMMUNOGLOBULIN G
     Route: 058
     Dates: start: 20241217

REACTIONS (13)
  - Meningitis [Not Recovered/Not Resolved]
  - Limb discomfort [Unknown]
  - Intervertebral disc protrusion [Recovered/Resolved]
  - Pain in extremity [Recovering/Resolving]
  - Blood pressure decreased [Unknown]
  - Headache [Not Recovered/Not Resolved]
  - Discomfort [Unknown]
  - Extra dose administered [Unknown]
  - Abdominal pain [Unknown]
  - Tinnitus [Unknown]
  - Headache [Recovered/Resolved]
  - Tinnitus [Recovered/Resolved]
  - Blood pressure increased [Recovered/Resolved]

NARRATIVE: CASE EVENT DATE: 20250102
